FAERS Safety Report 9335000 (Version 1)
Quarter: 2013Q2

REPORT INFORMATION
  Report Type: Spontaneous
  Country: US (occurrence: US)
  Receive Date: 20130606
  Receipt Date: 20130606
  Transmission Date: 20140414
  Serious: Yes (Death, Hospitalization, Other)
  Sender: FDA-Public Use
  Company Number: US-ROXANE LABORATORIES, INC.-2013-BI-16079GD

PATIENT
  Age: 52 Year
  Sex: Male

DRUGS (6)
  1. PREDNISONE [Suspect]
     Indication: IMMUNOSUPPRESSANT DRUG THERAPY
  2. TACROLIMUS [Suspect]
     Indication: IMMUNOSUPPRESSANT DRUG THERAPY
  3. MYCOPHENOLATE MOFETIL [Suspect]
     Indication: IMMUNOSUPPRESSANT DRUG THERAPY
  4. VORICONAZOLE [Suspect]
     Indication: BRONCHOPULMONARY ASPERGILLOSIS
     Dates: start: 2006
  5. VALGANCICLOVIR [Concomitant]
     Indication: PROPHYLAXIS
  6. TRIMETHOPRIM-SULFAMETHOXAZOLE [Concomitant]
     Indication: PROPHYLAXIS

REACTIONS (11)
  - Multi-organ failure [Fatal]
  - Myocardial infarction [Fatal]
  - Pulmonary haemorrhage [Fatal]
  - Bronchopulmonary aspergillosis [Fatal]
  - Zygomycosis [Fatal]
  - Cardiogenic shock [Fatal]
  - Pneumonia necrotising [Unknown]
  - Lung abscess [Unknown]
  - Haemoptysis [Unknown]
  - Renal failure acute [Unknown]
  - Diabetes mellitus [Unknown]
